FAERS Safety Report 21747505 (Version 1)
Quarter: 2022Q4

REPORT INFORMATION
  Report Type: Spontaneous
  Country: US (occurrence: US)
  Receive Date: 20221219
  Receipt Date: 20221219
  Transmission Date: 20230112
  Serious: No
  Sender: FDA-Public Use
  Company Number: US-NOVEN PHARMACEUTICALS, INC.-2022-NOV-US000706

PATIENT
  Age: 68 Year
  Sex: Female

DRUGS (2)
  1. MINIVELLE [Suspect]
     Active Substance: ESTRADIOL
     Indication: Hot flush
     Dosage: 1/2 PATCH OF 0.05 MG, 1/2 PATCH EVERY 3-4 DAYS (MONDAY AND THURSDAYS)
     Route: 062
     Dates: start: 202205
  2. MINIVELLE [Suspect]
     Active Substance: ESTRADIOL
     Indication: Night sweats
     Dosage: 1/2 PATCH OF 0.05 MG, 1/2 PATCH EVERY 3-4 DAYS (MONDAY AND THURSDAYS)
     Route: 062

REACTIONS (2)
  - Therapeutic product ineffective [Not Recovered/Not Resolved]
  - Off label use [Not Recovered/Not Resolved]
